FAERS Safety Report 7377409-X (Version None)
Quarter: 2011Q1

REPORT INFORMATION
  Report Type: 
  Country: None (occurrence: None)
  Receive Date: 20110328
  Receipt Date: 20110324
  Transmission Date: 20110831
  Serious: Yes (Hospitalization)
  Sender: FDA-Public Use
  Company Number: DE-BAXTER-2011BH006309

PATIENT
  Age: 30 Year
  Sex: Male
  Weight: 100 kg

DRUGS (2)
  1. GAMMAGARD LIQUID [Suspect]
     Indication: OFF LABEL USE
     Route: 042
     Dates: start: 20110313, end: 20110313
  2. GAMMAGARD LIQUID [Suspect]
     Indication: WEGENER'S GRANULOMATOSIS
     Route: 042
     Dates: start: 20110313, end: 20110313

REACTIONS (6)
  - EPISTAXIS [None]
  - PYREXIA [None]
  - TREMOR [None]
  - WRONG DRUG ADMINISTERED [None]
  - HEADACHE [None]
  - TACHYCARDIA [None]
